FAERS Safety Report 7290991-6 (Version None)
Quarter: 2011Q1

REPORT INFORMATION
  Report Type: 
  Country: None (occurrence: None)
  Receive Date: 20110214
  Receipt Date: 20110204
  Transmission Date: 20110831
  Serious: Yes (Hospitalization, Other)
  Sender: FDA-Public Use
  Company Number: IN-BRISTOL-MYERS SQUIBB COMPANY-14690010

PATIENT
  Age: 29 Year
  Sex: Female

DRUGS (8)
  1. CALCIUM CARBONATE [Concomitant]
     Dates: start: 20071023
  2. ABATACEPT [Suspect]
     Indication: SYSTEMIC LUPUS ERYTHEMATOSUS
     Dosage: LAST DOSE: 24OCT2008
     Route: 042
     Dates: start: 20071121
  3. MYCOPHENOLATE MOFETIL [Suspect]
     Indication: SYSTEMIC LUPUS ERYTHEMATOSUS
     Dates: start: 20080114
  4. HYDROXYCHLOROQUINE SULFATE [Concomitant]
     Dates: start: 20071023
  5. PREDNISONE [Suspect]
     Indication: SYSTEMIC LUPUS ERYTHEMATOSUS
     Dates: start: 20090306
  6. ETORICOXIB [Concomitant]
     Dates: start: 20090605
  7. ASPIRIN [Concomitant]
     Dates: start: 20080702
  8. ALENDRONATE [Concomitant]
     Dates: start: 20090605

REACTIONS (1)
  - OSTEONECROSIS [None]
